FAERS Safety Report 11923797 (Version 1)
Quarter: 2016Q1

REPORT INFORMATION
  Report Type: Spontaneous
  Country: GB (occurrence: GB)
  Receive Date: 20160118
  Receipt Date: 20160118
  Transmission Date: 20160526
  Serious: Yes (Other)
  Sender: FDA-Public Use
  Company Number: GB-TARO PHARMACEUTICALS UK LTD-2016SUN00014

PATIENT
  Age: 69 Year
  Sex: Female

DRUGS (1)
  1. WARFARIN [Suspect]
     Active Substance: WARFARIN
     Indication: DEEP VEIN THROMBOSIS
     Dosage: UNK
     Route: 065

REACTIONS (6)
  - Alopecia [None]
  - Brain stem infarction [None]
  - Basilar artery thrombosis [None]
  - Vomiting [None]
  - Calciphylaxis [Recovered/Resolved]
  - Nausea [None]
